FAERS Safety Report 9504139 (Version 1)
Quarter: 2013Q1

REPORT INFORMATION
  Report Type: Spontaneous
  Country: US (occurrence: None)
  Receive Date: 20130225
  Receipt Date: 20130225
  Transmission Date: 20140127
  Serious: No
  Sender: FDA-Public Use
  Company Number: 363648

PATIENT
  Age: 57 Year
  Sex: Female

DRUGS (1)
  1. VICTOZA (LIRAGLUTIDE) SOLUTION FOR INJECTION, 6MG/ML [Suspect]
     Indication: TYPE 2 DIABETES MELLITUS
     Route: 058
     Dates: start: 201210, end: 20121101

REACTIONS (6)
  - Thinking abnormal [None]
  - Poor quality sleep [None]
  - Decreased appetite [None]
  - Malaise [None]
  - Nausea [None]
  - Diabetes mellitus inadequate control [None]
